FAERS Safety Report 12351209 (Version 1)
Quarter: 2016Q2

REPORT INFORMATION
  Report Type: Spontaneous
  Country: US (occurrence: None)
  Receive Date: 20160509
  Receipt Date: 20160509
  Transmission Date: 20160815
  Serious: Yes (Other)
  Sender: FDA-Public Use
  Company Number: None

PATIENT
  Age: 41 Year
  Sex: Female
  Weight: 86.18 kg

DRUGS (2)
  1. MUPIROCIN. [Suspect]
     Active Substance: MUPIROCIN
     Indication: STAPHYLOCOCCAL INFECTION
     Dosage: 30 GM THREE TIMES A DAY APPLIED TO A SURFACE, USUALLY THE SKIN
     Route: 061
     Dates: start: 20160504, end: 20160505
  2. MUPIROCIN. [Suspect]
     Active Substance: MUPIROCIN
     Indication: IMPETIGO
     Dosage: 30 GM THREE TIMES A DAY APPLIED TO A SURFACE, USUALLY THE SKIN
     Route: 061
     Dates: start: 20160504, end: 20160505

REACTIONS (5)
  - Impetigo [None]
  - Product quality issue [None]
  - Drug ineffective [None]
  - Product physical issue [None]
  - Condition aggravated [None]

NARRATIVE: CASE EVENT DATE: 20160504
